FAERS Safety Report 7678807-7 (Version None)
Quarter: 2011Q3

REPORT INFORMATION
  Report Type: 
  Country: None (occurrence: None)
  Receive Date: 20110811
  Receipt Date: 20110802
  Transmission Date: 20111222
  Serious: Yes (Hospitalization)
  Sender: FDA-Public Use
  Company Number: US-ASTRAZENECA-2011SE15562

PATIENT
  Age: 80 Year
  Sex: Female
  Weight: 74.8 kg

DRUGS (12)
  1. LACTULOSE [Concomitant]
  2. POTASSIUM CHLORIDE [Concomitant]
     Route: 048
  3. WARFARIN [Concomitant]
  4. PRN SOAP SUDS ENEMA [Concomitant]
  5. FUROSEMIDE [Concomitant]
  6. TRAMADOL HCL [Concomitant]
     Indication: PAIN
  7. ALBUTEROL SULFATE AUTOHALER [Concomitant]
     Indication: WHEEZING
  8. MULTAQ [Concomitant]
  9. SIMVASTATIN [Concomitant]
  10. SPIRONOLACTONE [Concomitant]
  11. MIRALAX [Concomitant]
     Indication: CONSTIPATION
     Dosage: 17 G IN 8 OUNCES OF WATER
     Route: 048
  12. ARIMIDEX [Suspect]
     Indication: BREAST CANCER
     Route: 048

REACTIONS (13)
  - RENAL FAILURE ACUTE [None]
  - FALL [None]
  - OBSTRUCTIVE AIRWAYS DISORDER [None]
  - BEDRIDDEN [None]
  - CONSTIPATION [None]
  - DYSPNOEA [None]
  - ADVERSE EVENT [None]
  - BRAIN NATRIURETIC PEPTIDE INCREASED [None]
  - MOBILITY DECREASED [None]
  - GENERALISED OEDEMA [None]
  - ATRIAL FIBRILLATION [None]
  - PLEURAL EFFUSION [None]
  - CENTRAL VENOUS CATHETERISATION [None]
